FAERS Safety Report 4979013-7 (Version None)
Quarter: 2006Q2

REPORT INFORMATION
  Report Type: 
  Country: None (occurrence: None)
  Receive Date: 20060417
  Receipt Date: 20060403
  Transmission Date: 20061013
  Serious: Yes (Hospitalization)
  Sender: FDA-Public Use
  Company Number: 02100-EUR-06-0021

PATIENT
  Age: 79 Year
  Sex: Female

DRUGS (9)
  1. CILOSTAZOL [Suspect]
     Dosage: 200 MG ORAL
     Route: 048
     Dates: start: 20040501
  2. OMEPRAZOLE [Concomitant]
  3. ISOSORBIDE MONONITRATE [Concomitant]
  4. RAMIPRIL [Concomitant]
  5. ATENOLOL [Concomitant]
  6. ACETYLSALICYLIC ACID SRT [Concomitant]
  7. TEMAZEPAM [Concomitant]
  8. SIMVASTATIN [Concomitant]
  9. NAPROXEN [Concomitant]

REACTIONS (1)
  - ACUTE CORONARY SYNDROME [None]
